FAERS Safety Report 6167191-6 (Version None)
Quarter: 2009Q2

REPORT INFORMATION
  Report Type: 
  Country: None (occurrence: None)
  Receive Date: 20090423
  Receipt Date: 20090408
  Transmission Date: 20091009
  Serious: Yes (Other)
  Sender: FDA-Public Use
  Company Number: 002#1#2008-00694

PATIENT
  Age: 65 Year
  Sex: Female
  Weight: 45 kg

DRUGS (4)
  1. ROTIGOTINE [Suspect]
     Indication: PARKINSON'S DISEASE
     Dosage: 4 MG/24HOURS; UNIT DOSE 4 MILLIGRAM/24 HOURS  QD,; TRANSDERMAL
     Route: 062
     Dates: start: 20080101, end: 20080601
  2. SYNDOPA [Concomitant]
  3. .. [Concomitant]
  4. ATENOLOL [Concomitant]

REACTIONS (3)
  - ACCELERATED HYPERTENSION [None]
  - DIALYSIS [None]
  - RENAL FAILURE ACUTE [None]
